FAERS Safety Report 11112777 (Version 3)
Quarter: 2015Q2

REPORT INFORMATION
  Report Type: Report from Study
  Country: IT (occurrence: IT)
  Receive Date: 20150514
  Receipt Date: 20150602
  Transmission Date: 20150821
  Serious: Yes (Other)
  Sender: FDA-Public Use
  Company Number: IT-ROCHE-1555140

PATIENT
  Age: 66 Year
  Sex: Male

DRUGS (5)
  1. VEMURAFENIB [Suspect]
     Active Substance: VEMURAFENIB
     Indication: MALIGNANT MELANOMA
     Route: 048
     Dates: start: 20141202, end: 20150216
  2. MUPIROCIN. [Concomitant]
     Active Substance: MUPIROCIN
     Route: 061
  3. ALLOPURINOL. [Concomitant]
     Active Substance: ALLOPURINOL
     Indication: HYPERURICAEMIA
     Route: 048
  4. VEMURAFENIB [Suspect]
     Active Substance: VEMURAFENIB
     Dosage: DOSE REDUCED
     Route: 048
     Dates: start: 20150217
  5. GENTALYN [Concomitant]
     Active Substance: GENTAMICIN SULFATE
     Indication: SEBORRHOEIC KERATOSIS
     Route: 061
     Dates: start: 20150317

REACTIONS (5)
  - Diplopia [Recovered/Resolved]
  - Arthralgia [Not Recovered/Not Resolved]
  - Visual acuity reduced [Not Recovered/Not Resolved]
  - Photophobia [Unknown]
  - Asthenia [Unknown]

NARRATIVE: CASE EVENT DATE: 20141202
